FAERS Safety Report 6635433-6 (Version None)
Quarter: 2010Q1

REPORT INFORMATION
  Report Type: 
  Country: None (occurrence: None)
  Receive Date: 20100315
  Receipt Date: 20090713
  Transmission Date: 20100710
  Serious: No
  Sender: FDA-Public Use
  Company Number: US-ABBOTT-09P-163-0585384-00

PATIENT
  Sex: Female

DRUGS (2)
  1. DEPAKOTE [Suspect]
     Indication: BIPOLAR DISORDER
     Dates: start: 20090613
  2. RISPERDAL [Suspect]
     Indication: BIPOLAR DISORDER
     Dates: start: 20090613

REACTIONS (1)
  - VISION BLURRED [None]
